FAERS Safety Report 5737194-1 (Version None)
Quarter: 2008Q2

REPORT INFORMATION
  Report Type: 
  Country: None (occurrence: None)
  Receive Date: 20080512
  Receipt Date: 20080512
  Transmission Date: 20081010
  Serious: Yes (Death)
  Sender: FDA-Public Use
  Company Number: None

PATIENT
  Age: 76 Year
  Sex: Female
  Weight: 47.6277 kg

DRUGS (1)
  1. DIGITEK   0.125   ACTAVIS TOTOWA LLC [Suspect]
     Dosage: 0.125 DAILY PO
     Route: 048
     Dates: start: 20071224, end: 20080108

REACTIONS (1)
  - PHARMACEUTICAL PRODUCT COMPLAINT [None]
